FAERS Safety Report 7354520-0 (Version None)
Quarter: 2011Q1

REPORT INFORMATION
  Report Type: 
  Country: None (occurrence: None)
  Receive Date: 20110316
  Receipt Date: 20100809
  Transmission Date: 20110831
  Serious: Yes (Hospitalization, Other)
  Sender: FDA-Public Use
  Company Number: US-BAYER-201014751NA

PATIENT
  Sex: Female
  Weight: 63.492 kg

DRUGS (4)
  1. FLOVENT [Concomitant]
     Dosage: UNK UNK, BID
     Route: 045
  2. YAZ [Suspect]
     Indication: MENORRHAGIA
     Dosage: AS USED DOSE: UNK
     Route: 048
     Dates: start: 20071101, end: 20080221
  3. THEOPHYLLINE [Concomitant]
     Dosage: UNK UNK, QD
  4. ZOLOFT [Concomitant]
     Dosage: 50 MG, UNK

REACTIONS (3)
  - DEEP VEIN THROMBOSIS [None]
  - PULMONARY EMBOLISM [None]
  - TRICUSPID VALVE INCOMPETENCE [None]
